FAERS Safety Report 12287108 (Version 1)
Quarter: 2016Q2

REPORT INFORMATION
  Report Type: Spontaneous
  Country: FR (occurrence: FR)
  Receive Date: 20160420
  Receipt Date: 20160420
  Transmission Date: 20160815
  Serious: Yes (Hospitalization, Other)
  Sender: FDA-Public Use
  Company Number: FR-PFIZER INC-2016217634

PATIENT
  Age: 89 Year
  Sex: Female
  Weight: 47.4 kg

DRUGS (5)
  1. EFFEXOR LP [Suspect]
     Active Substance: VENLAFAXINE HYDROCHLORIDE
     Indication: DEPRESSION
     Dosage: 75 MG, 1X/DAY
     Route: 048
     Dates: start: 20151230, end: 20160112
  2. IDEOS [Concomitant]
     Active Substance: CALCIUM CARBONATE\CHOLECALCIFEROL
     Dosage: 1 DF OF 500 MG/400 IU, SUCKING OR CRUNCHING TABLETS
     Route: 048
  3. FLECAINE [Concomitant]
     Active Substance: FLECAINIDE
     Dosage: 200 MG, DAILY
     Route: 048
  4. KESTIN [Concomitant]
     Active Substance: EBASTINE
     Dosage: 10 MG, 1X/DAY
     Route: 048
  5. EBIXA [Concomitant]
     Active Substance: MEMANTINE HYDROCHLORIDE
     Indication: DEMENTIA ALZHEIMER^S TYPE
     Dosage: 20 MG, 1X/DAY
     Route: 048

REACTIONS (2)
  - General physical health deterioration [Recovered/Resolved]
  - Fall [Recovered/Resolved]

NARRATIVE: CASE EVENT DATE: 20151230
